FAERS Safety Report 5135891-2 (Version None)
Quarter: 2006Q4

REPORT INFORMATION
  Report Type: 
  Country: None (occurrence: None)
  Receive Date: 20061026
  Receipt Date: 20060911
  Transmission Date: 20070319
  Serious: Yes (Other)
  Sender: FDA-Public Use
  Company Number: JP-MERCK-0609USA02551

PATIENT
  Sex: Male

DRUGS (1)
  1. PROPECIA [Suspect]
     Route: 048

REACTIONS (2)
  - DEAFNESS [None]
  - DIZZINESS [None]
